FAERS Safety Report 11539714 (Version 1)
Quarter: 2015Q3

REPORT INFORMATION
  Report Type: Spontaneous
  Country: US (occurrence: None)
  Receive Date: 20150922
  Receipt Date: 20150922
  Transmission Date: 20151125
  Serious: Yes (Hospitalization)
  Sender: FDA-Public Use
  Company Number: None

PATIENT
  Age: 66 Year
  Sex: Female
  Weight: 61.4 kg

DRUGS (1)
  1. NUVIGIL [Suspect]
     Active Substance: ARMODAFINIL
     Dates: end: 20150909

REACTIONS (5)
  - Loss of consciousness [None]
  - Head injury [None]
  - Computerised tomogram abnormal [None]
  - Gaze palsy [None]
  - Fall [None]

NARRATIVE: CASE EVENT DATE: 20150914
